FAERS Safety Report 20721178 (Version 1)
Quarter: 2022Q2

REPORT INFORMATION
  Report Type: Spontaneous
  Country: US (occurrence: None)
  Receive Date: 20220415
  Receipt Date: 20220415
  Transmission Date: 20220721
  Serious: Yes (Disabling)
  Sender: FDA-Public Use
  Company Number: None

PATIENT
  Age: 24 Year
  Sex: Female
  Weight: 63 kg

DRUGS (1)
  1. PROPOFOL [Suspect]
     Active Substance: PROPOFOL
     Indication: Anaesthesia
     Route: 042
     Dates: start: 20210810, end: 20210810

REACTIONS (5)
  - Visual impairment [None]
  - Recalled product administered [None]
  - Fatigue [None]
  - Pain [None]
  - Autoimmune disorder [None]

NARRATIVE: CASE EVENT DATE: 20210810
